FAERS Safety Report 9331373 (Version 1)
Quarter: 2013Q2

REPORT INFORMATION
  Report Type: Other
  Country: DE (occurrence: DE)
  Receive Date: 20130605
  Receipt Date: 20130605
  Transmission Date: 20140414
  Serious: Yes (Congenital Anomaly, Other)
  Sender: FDA-Public Use
  Company Number: DE-NICOBRDEVP-2013-09592

PATIENT
  Sex: Male
  Weight: 5 kg

DRUGS (7)
  1. LAMOTRIGINE (UNKNOWN) [Suspect]
     Indication: EPILEPSY
     Dosage: 300 MG, DAILY
     Route: 064
     Dates: start: 20110806, end: 20120511
  2. KEPPRA [Suspect]
     Indication: EPILEPSY
     Dosage: 2000 MG, DAILY
     Route: 064
     Dates: start: 20110806, end: 20120511
  3. SEROQUEL [Suspect]
     Indication: BORDERLINE PERSONALITY DISORDER
     Dosage: 50 MG, DAILY
     Route: 064
     Dates: start: 20110806, end: 20120511
  4. RIVOTRIL [Suspect]
     Indication: BORDERLINE PERSONALITY DISORDER
     Dosage: 0.5 MG, DAILY
     Route: 064
     Dates: start: 20110806, end: 20120315
  5. EUTHYROX [Concomitant]
     Indication: HYPOTHYROIDISM
     Dosage: 150 MCG, DAILY
     Route: 064
     Dates: start: 20110806, end: 20120511
  6. STANGYL                            /00051802/ [Concomitant]
     Indication: BORDERLINE PERSONALITY DISORDER
     Dosage: 100 MG, DAILY
     Route: 064
     Dates: start: 20110806, end: 20111215
  7. HEROIN [Concomitant]
     Indication: DRUG ABUSE
     Dosage: UNK
     Route: 064

REACTIONS (4)
  - Neonatal respiratory distress syndrome [Recovered/Resolved]
  - Withdrawal syndrome [Recovered/Resolved]
  - Convulsion [Recovered/Resolved]
  - Dysmorphism [Unknown]
